FAERS Safety Report 8824541 (Version 2)
Quarter: 2012Q4

REPORT INFORMATION
  Report Type: 
  Country: JP (occurrence: JP)
  Receive Date: 20121004
  Receipt Date: 20121127
  Transmission Date: 20130627
  Serious: Yes (Other)
  Sender: FDA-Public Use
  Company Number: JP-ASTRAZENECA-2012SE75380

PATIENT
  Age: 88 Year
  Sex: Male

DRUGS (2)
  1. CASODEX [Suspect]
     Indication: PROSTATE CANCER
     Route: 048
     Dates: start: 2010, end: 201209
  2. LEUPLIN [Concomitant]
     Dosage: Dose unknown
     Route: 058

REACTIONS (1)
  - Acute respiratory failure [Unknown]
